FAERS Safety Report 6576749-1 (Version None)
Quarter: 2010Q1

REPORT INFORMATION
  Report Type: 
  Country: None (occurrence: None)
  Receive Date: 20100210
  Receipt Date: 20100129
  Transmission Date: 20100710
  Serious: No
  Sender: FDA-Public Use
  Company Number: JP-ELI_LILLY_AND_COMPANY-JP201001003088

PATIENT
  Sex: Female

DRUGS (5)
  1. ZYPREXA [Suspect]
     Indication: DYSTHYMIC DISORDER
     Dosage: 2.5 MG, DAILY (1/D)
     Route: 048
     Dates: start: 20090106, end: 20091222
  2. ZYPREXA [Suspect]
     Dosage: 1.25 MG, DAILY (1/D)
     Route: 048
     Dates: start: 20100112
  3. LENDORMIN [Concomitant]
     Indication: INSOMNIA
     Dosage: 0.25 MG, DAILY (1/D)
     Route: 048
     Dates: start: 20080819
  4. ABILIFY [Concomitant]
     Dosage: 3 MG, DAILY (1/D)
     Route: 065
     Dates: start: 20091222, end: 20100111
  5. SERTRALINE HYDROCHLORIDE [Concomitant]
     Indication: DEPRESSIVE SYMPTOM
     Dosage: 25 MG, DAILY (1/D)
     Route: 048
     Dates: start: 20090414

REACTIONS (4)
  - INSOMNIA [None]
  - MENORRHAGIA [None]
  - MENSTRUATION IRREGULAR [None]
  - OFF LABEL USE [None]
